FAERS Safety Report 9292114 (Version 1)
Quarter: 2012Q4

REPORT INFORMATION
  Report Type: Spontaneous
  Country: US (occurrence: None)
  Receive Date: 20121005
  Receipt Date: 20121005
  Transmission Date: 20130627
  Serious: Yes (Hospitalization)
  Sender: FDA-Public Use
  Company Number: 2012TP000417

PATIENT
  Age: 54 Year
  Sex: Female

DRUGS (19)
  1. LIDODERM (5 PCT) [Suspect]
     Route: 061
  2. LOPINAVIR W/RITONAVIR [Suspect]
     Indication: HIV INFECTION
  3. EMTRICITABINE W/TENOFOVIR [Suspect]
     Indication: HIV INFECTION
  4. ZIDOVUDINE [Concomitant]
  5. LAMIVUDINE [Concomitant]
  6. INDINAVIR [Concomitant]
  7. STAVUDINE [Concomitant]
  8. DIDANOSINE [Concomitant]
  9. HYDROXYREA [Concomitant]
  10. NELFINAVIR [Concomitant]
  11. SAQUINAVIR [Concomitant]
  12. ACETAZOLAMIDE [Concomitant]
  13. FLUCONAZOLE [Concomitant]
  14. NAPROXEN [Concomitant]
  15. GABAPENTIN [Concomitant]
  16. NORTRIPTYLINE [Concomitant]
  17. CALCIUM PHOSPHATE W/COLECALCIFEROL [Concomitant]
  18. TRAZODONE [Concomitant]
  19. FEXOFENADINE HYDROCHLORIDE [Concomitant]

REACTIONS (2)
  - Coronary artery disease [None]
  - Acute myocardial infarction [None]
